FAERS Safety Report 5192283-8 (Version None)
Quarter: 2006Q4

REPORT INFORMATION
  Report Type: 
  Country: None (occurrence: None)
  Receive Date: 20061220
  Receipt Date: 20061211
  Transmission Date: 20070319
  Serious: Yes (Hospitalization, Other)
  Sender: FDA-Public Use
  Company Number: 238095K06USA

PATIENT
  Age: 35 Year
  Sex: Female

DRUGS (8)
  1. REBIF [Suspect]
     Indication: MULTIPLE SCLEROSIS
     Dosage: SEE IMAGE
     Route: 058
     Dates: start: 20061009, end: 20061101
  2. REBIF [Suspect]
     Indication: MULTIPLE SCLEROSIS
     Dosage: SEE IMAGE
     Route: 058
     Dates: start: 20061101
  3. XANAX [Concomitant]
  4. ZANAFLEX [Concomitant]
  5. BACLOFEN [Concomitant]
  6. DETROL [Concomitant]
  7. UNSPECIFIED CREAM (ALL OTHER THERAPEUTIC PRODUCTS) [Concomitant]
  8. UNSPECIFIED ANALGESICS (ANALGESICS) [Concomitant]

REACTIONS (5)
  - DEEP VEIN THROMBOSIS [None]
  - DIARRHOEA [None]
  - HEADACHE [None]
  - MUSCLE SPASMS [None]
  - STOMACH DISCOMFORT [None]
